FAERS Safety Report 17755897 (Version 4)
Quarter: 2020Q4

REPORT INFORMATION
  Report Type: Report from Study
  Country: US (occurrence: US)
  Receive Date: 20200507
  Receipt Date: 20201229
  Transmission Date: 20210113
  Serious: Yes (Hospitalization, Other)
  Sender: FDA-Public Use
  Company Number: US-TAKEDA-2018TUS033659

PATIENT
  Sex: Male

DRUGS (3)
  1. CODEINE [Concomitant]
     Active Substance: CODEINE
     Dosage: UNK
     Route: 065
  2. PONATINIB [Suspect]
     Active Substance: PONATINIB
     Indication: CHRONIC MYELOID LEUKAEMIA
     Dosage: 45 MILLIGRAM, QD
     Route: 048
     Dates: start: 20181108
  3. TYLENOL [Concomitant]
     Active Substance: ACETAMINOPHEN

REACTIONS (37)
  - Neck pain [Unknown]
  - Ear discomfort [Unknown]
  - Bone pain [Unknown]
  - Nasal congestion [Unknown]
  - Pruritus [Unknown]
  - Acne [Unknown]
  - Skin exfoliation [Unknown]
  - Blood potassium decreased [Recovered/Resolved]
  - Pregnancy of partner [Unknown]
  - Urine odour abnormal [Unknown]
  - Product dose omission issue [Unknown]
  - Urinary tract infection [Unknown]
  - Headache [Unknown]
  - Blood pressure increased [Unknown]
  - Constipation [Unknown]
  - Gastrooesophageal reflux disease [Unknown]
  - Spinal pain [Unknown]
  - Eye swelling [Unknown]
  - Pain in extremity [Unknown]
  - Abdominal pain upper [Unknown]
  - Hordeolum [Unknown]
  - Blister [Unknown]
  - Rash maculo-papular [Unknown]
  - Flatulence [Unknown]
  - Pyrexia [Unknown]
  - Tinnitus [Unknown]
  - Erectile dysfunction [Unknown]
  - Night sweats [Unknown]
  - Platelet count decreased [Recovered/Resolved]
  - Dizziness [Unknown]
  - Myalgia [Unknown]
  - Diarrhoea [Unknown]
  - Noninfective myringitis [Unknown]
  - Chronic myeloid leukaemia [Unknown]
  - Cardiovascular disorder [Unknown]
  - Blood pressure abnormal [Unknown]
  - Dry skin [Unknown]
